FAERS Safety Report 17856788 (Version 2)
Quarter: 2020Q2

REPORT INFORMATION
  Report Type: Spontaneous
  Country: US (occurrence: US)
  Receive Date: 20200603
  Receipt Date: 20200615
  Transmission Date: 20200714
  Serious: Yes (Other)
  Sender: FDA-Public Use
  Company Number: US-IPSEN BIOPHARMACEUTICALS, INC.-2020-07734

PATIENT
  Age: 1 Year
  Sex: Male
  Weight: 18.14 kg

DRUGS (9)
  1. CREON [Concomitant]
     Active Substance: PANCRELIPASE AMYLASE\PANCRELIPASE LIPASE\PANCRELIPASE PROTEASE
     Dosage: TAKE 1 CAPSULE BY MOUTH BEFORE MEALS  (ORAL AND G-TUBE FEEDS) AND SNACKS. 9 CAPSULES DAILY
     Route: 048
  2. VITAMINS [Concomitant]
     Active Substance: VITAMINS
     Route: 048
  3. DEXTROSE 70 PERCENT [Concomitant]
     Dosage: STERILE WATER SOLUTION 500 ML WITH DEXTROSE 70 PERCENT SOLUTION 100 G ORAL SOLUTION,8ML/HR
     Route: 048
  4. SOMATULINE DEPOT [Suspect]
     Active Substance: LANREOTIDE ACETATE
     Indication: CONGENITAL HYPERINSULINAEMIC HYPOGLYCAEMIA
     Route: 058
     Dates: start: 201711
  5. ZINC SULFATE. [Concomitant]
     Active Substance: ZINC SULFATE
     Dosage: 2 ML ONCE A DAY
     Route: 042
  6. NYSTATIN. [Concomitant]
     Active Substance: NYSTATIN
     Dosage: 100000 UNITS PER GRAM, APPLY TO AFFECTED AREA, POWDER
  7. GLUCAGON. [Concomitant]
     Active Substance: GLUCAGON
     Indication: HYPOGLYCAEMIA
     Dosage: INTO MUSCLE ONCE AS NEEDED
  8. SOMATULINE DEPOT [Suspect]
     Active Substance: LANREOTIDE ACETATE
     Indication: OFF LABEL USE
  9. CHOLECALCIFEROL [Concomitant]
     Active Substance: CHOLECALCIFEROL
     Route: 048

REACTIONS (7)
  - Off label use [Unknown]
  - Hepatic steatosis [Unknown]
  - Product quality issue [Unknown]
  - Weight gain poor [Unknown]
  - Growth retardation [Unknown]
  - Blood glucose decreased [Unknown]
  - Incorrect dose administered [Unknown]

NARRATIVE: CASE EVENT DATE: 201711
